FAERS Safety Report 5547859-2 (Version None)
Quarter: 2007Q4

REPORT INFORMATION
  Report Type: 
  Country: None (occurrence: None)
  Receive Date: 20071128
  Receipt Date: 20070501
  Transmission Date: 20080405
  Serious: Yes (Other)
  Sender: FDA-Public Use
  Company Number: 2007025186

PATIENT
  Sex: 0

DRUGS (1)
  1. LIPITOR [Suspect]
     Dosage: 10 MG

REACTIONS (4)
  - ARRHYTHMIA [None]
  - HYPERTENSION [None]
  - MALAISE [None]
  - PALPITATIONS [None]
